FAERS Safety Report 11806300 (Version 3)
Quarter: 2016Q1

REPORT INFORMATION
  Report Type: Spontaneous
  Country: US (occurrence: US)
  Receive Date: 20151207
  Receipt Date: 20160120
  Transmission Date: 20160525
  Serious: Yes (Hospitalization)
  Sender: FDA-Public Use
  Company Number: US-BEH-2015056302

PATIENT
  Sex: Male
  Weight: 78 kg

DRUGS (28)
  1. LMX [Concomitant]
     Active Substance: LIDOCAINE
  2. HIZENTRA [Suspect]
     Active Substance: HUMAN IMMUNOGLOBULIN G
     Indication: BRONCHIECTASIS
     Route: 058
  3. PANTOPRAZOLE [Concomitant]
     Active Substance: PANTOPRAZOLE SODIUM
  4. SYMBICORT [Concomitant]
     Active Substance: BUDESONIDE\FORMOTEROL FUMARATE DIHYDRATE
  5. TOBI [Concomitant]
     Active Substance: TOBRAMYCIN
  6. LIDOCAINE/PRILOCAINE [Concomitant]
  7. GUAIFENESIN. [Concomitant]
     Active Substance: GUAIFENESIN
  8. ALBUTEROL. [Concomitant]
     Active Substance: ALBUTEROL
  9. METHYLPREDNISOLONE. [Concomitant]
     Active Substance: METHYLPREDNISOLONE
  10. ACETAMINOPHEN. [Concomitant]
     Active Substance: ACETAMINOPHEN
  11. EPIPEN [Concomitant]
     Active Substance: EPINEPHRINE
  12. VITAMIN C [Concomitant]
     Active Substance: ASCORBIC ACID
  13. KLONOPIN [Concomitant]
     Active Substance: CLONAZEPAM
  14. QVAR [Concomitant]
     Active Substance: BECLOMETHASONE DIPROPIONATE
  15. DIPHENHYDRAMINE. [Concomitant]
     Active Substance: DIPHENHYDRAMINE
  16. VENTOLIN [Concomitant]
     Active Substance: ALBUTEROL SULFATE
  17. XOLAIR [Concomitant]
     Active Substance: OMALIZUMAB
  18. HIZENTRA [Suspect]
     Active Substance: HUMAN IMMUNOGLOBULIN G
     Indication: ALVEOLITIS
     Route: 058
  19. ALEVE [Concomitant]
     Active Substance: NAPROXEN SODIUM
  20. COLACE [Concomitant]
     Active Substance: DOCUSATE SODIUM
  21. GLYBURIDE. [Concomitant]
     Active Substance: GLYBURIDE
  22. CIPROFLOXACIN. [Concomitant]
     Active Substance: CIPROFLOXACIN
  23. BACTRIM DS [Concomitant]
     Active Substance: SULFAMETHOXAZOLE\TRIMETHOPRIM
  24. HIZENTRA [Suspect]
     Active Substance: HUMAN IMMUNOGLOBULIN G
     Indication: BRONCHIECTASIS
     Route: 058
  25. AZITHROMYCIN ANHYDROUS. [Concomitant]
     Active Substance: AZITHROMYCIN ANHYDROUS
  26. METFORMIN [Concomitant]
     Active Substance: METFORMIN HYDROCHLORIDE
  27. CALCIUM [Concomitant]
     Active Substance: CALCIUM
  28. PREDNISONE. [Concomitant]
     Active Substance: PREDNISONE

REACTIONS (2)
  - Pneumonia [Unknown]
  - Drug dose omission [Unknown]
